FAERS Safety Report 7297289-0 (Version None)
Quarter: 2011Q1

REPORT INFORMATION
  Report Type: 
  Country: None (occurrence: None)
  Receive Date: 20110216
  Receipt Date: 20110208
  Transmission Date: 20110831
  Serious: Yes (Disabling, Other)
  Sender: FDA-Public Use
  Company Number: US-BAXTER-2011BH003254

PATIENT
  Sex: Female

DRUGS (2)
  1. PHENYTOIN [Suspect]
     Indication: CONVULSION
     Route: 065
     Dates: start: 20071014
  2. PHENYTOIN NON-BAXTER [Suspect]
     Indication: CONVULSION
     Route: 065

REACTIONS (4)
  - STEVENS-JOHNSON SYNDROME [None]
  - SCAR [None]
  - SKIN HYPERPIGMENTATION [None]
  - PAIN [None]
